FAERS Safety Report 17608284 (Version 1)
Quarter: 2020Q1

REPORT INFORMATION
  Report Type: Spontaneous
  Country: US (occurrence: US)
  Receive Date: 20200331
  Receipt Date: 20200331
  Transmission Date: 20200409
  Serious: No
  Sender: FDA-Public Use
  Company Number: US-009507513-2003USA010223

PATIENT
  Age: 34 Year
  Sex: Female

DRUGS (8)
  1. LIPITOR [Concomitant]
     Active Substance: ATORVASTATIN CALCIUM
     Indication: LEFT VENTRICULAR DYSFUNCTION
  2. PRINIVIL [Suspect]
     Active Substance: LISINOPRIL
     Indication: CORONARY ARTERY DISSECTION
  3. PRINIVIL [Suspect]
     Active Substance: LISINOPRIL
     Indication: LEFT VENTRICULAR DYSFUNCTION
  4. PLAVIX [Concomitant]
     Active Substance: CLOPIDOGREL BISULFATE
     Indication: CORONARY ARTERY DISSECTION
  5. PLAVIX [Concomitant]
     Active Substance: CLOPIDOGREL BISULFATE
     Indication: LEFT VENTRICULAR DYSFUNCTION
  6. LIPITOR [Concomitant]
     Active Substance: ATORVASTATIN CALCIUM
     Indication: CORONARY ARTERY DISSECTION
  7. METOPROLOL. [Concomitant]
     Active Substance: METOPROLOL
     Indication: CORONARY ARTERY DISSECTION
  8. METOPROLOL. [Concomitant]
     Active Substance: METOPROLOL
     Indication: LEFT VENTRICULAR DYSFUNCTION

REACTIONS (1)
  - Product use in unapproved indication [Unknown]
